FAERS Safety Report 10080797 (Version 2)
Quarter: 2014Q2

REPORT INFORMATION
  Report Type: Spontaneous
  Country: US (occurrence: US)
  Receive Date: 20140416
  Receipt Date: 20140425
  Transmission Date: 20141212
  Serious: Yes (Hospitalization)
  Sender: FDA-Public Use
  Company Number: US-JNJFOC-20140406408

PATIENT
  Age: 53 Year
  Sex: Male

DRUGS (9)
  1. XARELTO [Suspect]
     Indication: CEREBROVASCULAR ACCIDENT PROPHYLAXIS
     Route: 048
     Dates: start: 20131211
  2. XARELTO [Suspect]
     Indication: ATRIAL FIBRILLATION
     Route: 048
     Dates: start: 20131211
  3. CARVEDILOL [Concomitant]
     Route: 065
  4. DIGOXIN [Concomitant]
     Route: 065
  5. FUROSEMIDE [Concomitant]
     Route: 065
  6. IPRATROPIUM [Concomitant]
     Route: 065
  7. LEVALBUTEROL [Concomitant]
     Route: 065
  8. LOSARTAN [Concomitant]
     Route: 065
  9. DILTIAZEM [Concomitant]
     Route: 065

REACTIONS (1)
  - Intracranial haematoma [Recovering/Resolving]
